FAERS Safety Report 10883799 (Version 1)
Quarter: 2015Q1

REPORT INFORMATION
  Report Type: Spontaneous
  Country: US (occurrence: US)
  Receive Date: 20150304
  Receipt Date: 20150304
  Transmission Date: 20150721
  Serious: Yes (Hospitalization)
  Sender: FDA-Public Use
  Company Number: US-AMGEN-USASP2015019403

PATIENT
  Age: 48 Year
  Sex: Female

DRUGS (3)
  1. METHOTREXATE [Concomitant]
     Active Substance: METHOTREXATE
     Dosage: UNK UNK, QWK
     Route: 048
     Dates: start: 2007, end: 2014
  2. HUMIRA [Concomitant]
     Active Substance: ADALIMUMAB
     Dosage: UNK
  3. ENBREL [Suspect]
     Active Substance: ETANERCEPT
     Indication: ANKYLOSING SPONDYLITIS
     Dosage: 50 MG, QWK
     Route: 065
     Dates: start: 20030201, end: 20150208

REACTIONS (9)
  - Shoulder arthroplasty [Recovered/Resolved]
  - Pain [Not Recovered/Not Resolved]
  - Viral infection [Recovered/Resolved]
  - Hip arthroplasty [Recovered/Resolved]
  - Nasal congestion [Not Recovered/Not Resolved]
  - Thoracic outlet syndrome [Recovered/Resolved]
  - Meniscus removal [Recovered/Resolved]
  - Knee operation [Recovered/Resolved]
  - Cough [Recovered/Resolved]

NARRATIVE: CASE EVENT DATE: 2010
